FAERS Safety Report 7719636-5 (Version None)
Quarter: 2011Q3

REPORT INFORMATION
  Report Type: 
  Country: None (occurrence: None)
  Receive Date: 20110830
  Receipt Date: 20110822
  Transmission Date: 20111222
  Serious: Yes (Hospitalization)
  Sender: FDA-Public Use
  Company Number: PL-AMGEN-POLSP2011042555

PATIENT
  Age: 55 Year
  Sex: Male
  Weight: 70 kg

DRUGS (5)
  1. DEPAKENE [Concomitant]
  2. CONTROLOC                          /01263201/ [Concomitant]
  3. PROLIA [Suspect]
     Indication: METASTASES TO BONE
     Dosage: 120 MG, UNK
     Route: 058
     Dates: start: 20110728, end: 20110728
  4. LYRICA [Concomitant]
  5. BUPRENORFINA AZEVEDOS [Concomitant]

REACTIONS (3)
  - VOMITING [None]
  - FEELING ABNORMAL [None]
  - BODY TEMPERATURE INCREASED [None]
